FAERS Safety Report 17277011 (Version 1)
Quarter: 2020Q1

REPORT INFORMATION
  Report Type: Spontaneous
  Country: US (occurrence: US)
  Receive Date: 20191226
  Receipt Date: 20191226
  Transmission Date: 20200409
  Serious: Yes (Death, Life-Threatening, Hospitalization, Other)
  Sender: FDA-Public Use
  Company Number: None

PATIENT
  Age: 74 Year
  Sex: Male
  Weight: 89.8 kg

DRUGS (9)
  1. ATORVASTATIN 80MG ONE TABLET QHS [Suspect]
     Active Substance: ATORVASTATIN
     Route: 048
     Dates: start: 20161005, end: 20191015
  2. CARVEDILOL. [Concomitant]
     Active Substance: CARVEDILOL
  3. APIXABAN [Concomitant]
     Active Substance: APIXABAN
  4. CLONIDINE PATCH [Concomitant]
     Active Substance: CLONIDINE
  5. TIMOLOL 0.25% OPTHALMIC SOLUTION [Concomitant]
  6. BRIMONIDINE 0.2% OPTHALMIC SOLUTION [Concomitant]
  7. FUROSEMIDE. [Concomitant]
     Active Substance: FUROSEMIDE
  8. DOXAZOSIN [Concomitant]
     Active Substance: DOXAZOSIN MESYLATE
  9. NPH INSULIN [Concomitant]
     Active Substance: INSULIN BEEF

REACTIONS (5)
  - Diarrhoea [None]
  - Rhabdomyolysis [None]
  - Acute kidney injury [None]
  - Dyspnoea exertional [None]
  - Multiple organ dysfunction syndrome [None]

NARRATIVE: CASE EVENT DATE: 20191015
